FAERS Safety Report 14940553 (Version 2)
Quarter: 2018Q4

REPORT INFORMATION
  Report Type: Spontaneous
  Country: US (occurrence: US)
  Receive Date: 20180525
  Receipt Date: 20181116
  Transmission Date: 20190204
  Serious: Yes (Hospitalization, Other)
  Sender: FDA-Public Use
  Company Number: US-ASTRAZENECA-2018SE67705

PATIENT
  Age: 26161 Day
  Sex: Male
  Weight: 117.5 kg

DRUGS (3)
  1. SYMBICORT [Suspect]
     Active Substance: BUDESONIDE\FORMOTEROL FUMARATE DIHYDRATE
     Indication: CHRONIC OBSTRUCTIVE PULMONARY DISEASE
     Dosage: 160/4.5 MCG 2 PUFFS, TWO TIMES A DAY
     Route: 055
     Dates: start: 2013
  2. XARELTO [Concomitant]
     Active Substance: RIVAROXABAN
     Indication: ATRIAL FIBRILLATION
     Route: 048
  3. FLUTICASONE PROPIONATE. [Concomitant]
     Active Substance: FLUTICASONE PROPIONATE
     Indication: CHRONIC OBSTRUCTIVE PULMONARY DISEASE
     Dates: start: 20181008

REACTIONS (14)
  - Nephrolithiasis [Recovered/Resolved]
  - Off label use [Not Recovered/Not Resolved]
  - Fall [Unknown]
  - Dysuria [Recovered/Resolved]
  - Calculus bladder [Recovered/Resolved]
  - Sleep apnoea syndrome [Unknown]
  - Traumatic intracranial haemorrhage [Not Recovered/Not Resolved]
  - Blood count abnormal [Recovered/Resolved]
  - Foot fracture [Unknown]
  - Product use issue [Unknown]
  - Pallor [Recovered/Resolved]
  - Drug ineffective [Not Recovered/Not Resolved]
  - Intentional product misuse [Not Recovered/Not Resolved]
  - Ligament sprain [Unknown]

NARRATIVE: CASE EVENT DATE: 20170804
